FAERS Safety Report 24544220 (Version 2)
Quarter: 2024Q4

REPORT INFORMATION
  Report Type: Spontaneous
  Country: US (occurrence: US)
  Receive Date: 20241024
  Receipt Date: 20241115
  Transmission Date: 20250114
  Serious: No
  Sender: TRIS PHARMA, INC.
  Company Number: US-TRIS PHARMA, INC.-24US011694

PATIENT

DRUGS (2)
  1. ACETAMINOPHEN\HYDROCODONE BITARTRATE [Suspect]
     Active Substance: ACETAMINOPHEN\HYDROCODONE BITARTRATE
     Indication: Pain
     Dosage: 1 DOSAGE FORM, QID
  2. UNSPECIFIED INGREDIENT [Concomitant]
     Active Substance: UNSPECIFIED INGREDIENT
     Indication: Myocardial infarction
     Dosage: UNK

REACTIONS (7)
  - Malaise [Not Recovered/Not Resolved]
  - Product quality issue [Unknown]
  - Abdominal discomfort [Recovered/Resolved]
  - Abdominal pain upper [Recovered/Resolved]
  - Nausea [Recovered/Resolved]
  - Withdrawal syndrome [Not Recovered/Not Resolved]
  - Drug ineffective [Unknown]
